FAERS Safety Report 4433838-5 (Version None)
Quarter: 2004Q3

REPORT INFORMATION
  Report Type: 
  Country: None (occurrence: None)
  Receive Date: 20040825
  Receipt Date: 20040809
  Transmission Date: 20050211
  Serious: Yes (Death, Other)
  Sender: FDA-Public Use
  Company Number: USA040875064

PATIENT
  Age: 68 Year
  Sex: Female

DRUGS (8)
  1. FORTEO [Suspect]
     Indication: OSTEOPOROSIS
     Dates: start: 20040401
  2. VERELAN (VERAPAMIL HYDROCHLORIDE) [Concomitant]
  3. PREMARIN [Concomitant]
  4. PLETAL [Concomitant]
  5. LASIX [Concomitant]
  6. OXYCONTIN [Concomitant]
  7. XANAX (ALPRAZOLAM DUM) [Concomitant]
  8. EFFEXOR [Concomitant]

REACTIONS (2)
  - CARDIAC DISORDER [None]
  - PHARMACEUTICAL PRODUCT COMPLAINT [None]
